FAERS Safety Report 14479189 (Version 2)
Quarter: 2018Q1

REPORT INFORMATION
  Report Type: Spontaneous
  Country: US (occurrence: US)
  Receive Date: 20180202
  Receipt Date: 20180320
  Transmission Date: 20180509
  Serious: Yes (Other)
  Sender: FDA-Public Use
  Company Number: US-BAYER-2018-021294

PATIENT
  Sex: Female

DRUGS (3)
  1. MIRENA [Suspect]
     Active Substance: LEVONORGESTREL
     Indication: MENORRHAGIA
  2. MIRENA [Suspect]
     Active Substance: LEVONORGESTREL
     Indication: CONTRACEPTION
     Dosage: 20 MCG/24HR, CONT
     Route: 015
     Dates: start: 20170829
  3. MIRENA [Suspect]
     Active Substance: LEVONORGESTREL

REACTIONS (3)
  - Genital haemorrhage [Recovered/Resolved]
  - Device expulsion [None]
  - Pelvic pain [Recovered/Resolved]

NARRATIVE: CASE EVENT DATE: 2017
